FAERS Safety Report 5074048-0 (Version None)
Quarter: 2006Q3

REPORT INFORMATION
  Report Type: 
  Country: None (occurrence: None)
  Receive Date: 20060808
  Receipt Date: 20050701
  Transmission Date: 20061208
  Serious: No
  Sender: FDA-Public Use
  Company Number: US-AMGEN-KDL141462

PATIENT
  Age: 54 Year
  Sex: Male

DRUGS (6)
  1. PROCRIT [Suspect]
     Indication: PRE-EXISTING DISEASE
     Route: 058
     Dates: start: 20050623
  2. INFERGEN [Concomitant]
  3. RIBAVIRIN [Concomitant]
  4. ATIVAN [Concomitant]
  5. ACETAMINOPHEN [Concomitant]
  6. NORVASC [Concomitant]

REACTIONS (1)
  - PYREXIA [None]
